FAERS Safety Report 9133674 (Version 5)
Quarter: 2013Q3

REPORT INFORMATION
  Report Type: Report from Study
  Country: US (occurrence: US)
  Receive Date: 20130302
  Receipt Date: 20130904
  Transmission Date: 20140515
  Serious: Yes (Other)
  Sender: FDA-Public Use
  Company Number: US-US-EMD SERONO, INC.-7196002

PATIENT
  Age: 56 Year
  Sex: Female
  Weight: 86 kg

DRUGS (7)
  1. REBIF [Suspect]
     Indication: MULTIPLE SCLEROSIS
     Route: 058
     Dates: start: 20060705
  2. PREDNISONE [Concomitant]
     Indication: PREMEDICATION
  3. IBUPROFEN [Concomitant]
     Indication: PREMEDICATION
  4. KLONOPIN [Concomitant]
     Indication: ANXIETY
     Dosage: 1/2 IN AM AND NIGHT
  5. LEXAPRO [Concomitant]
     Indication: ANXIETY
  6. SYNTHROID [Concomitant]
     Indication: HYPOTHYROIDISM
     Dates: end: 201302
  7. SYNTHROID [Concomitant]
     Dates: start: 201302

REACTIONS (12)
  - Hernia [Not Recovered/Not Resolved]
  - Scar [Not Recovered/Not Resolved]
  - Eye swelling [Recovered/Resolved]
  - Anorectal discomfort [Not Recovered/Not Resolved]
  - Sciatica [Not Recovered/Not Resolved]
  - Joint swelling [Not Recovered/Not Resolved]
  - Overweight [Not Recovered/Not Resolved]
  - Oedema peripheral [Not Recovered/Not Resolved]
  - Injection site erythema [Not Recovered/Not Resolved]
  - Injection site bruising [Not Recovered/Not Resolved]
  - Injection site pruritus [Not Recovered/Not Resolved]
  - Influenza like illness [Not Recovered/Not Resolved]
